FAERS Safety Report 5531644-1 (Version None)
Quarter: 2007Q4

REPORT INFORMATION
  Report Type: 
  Country: None (occurrence: None)
  Receive Date: 20071128
  Receipt Date: 20071127
  Transmission Date: 20080405
  Serious: Yes (Hospitalization)
  Sender: FDA-Public Use
  Company Number: GRT 2006-11088

PATIENT
  Age: 65 Year
  Sex: Male
  Weight: 78 kg

DRUGS (2)
  1. LIDOCAINE [Suspect]
     Indication: POST HERPETIC NEURALGIA
     Dosage: 1 ~ 3 PATCHES A DAY
     Dates: start: 20040801
  2. PRAVASIN PROTECT [Concomitant]

REACTIONS (2)
  - CHOLESTEATOMA [None]
  - EAR INFECTION [None]
